FAERS Safety Report 16071047 (Version 1)
Quarter: 2019Q1

REPORT INFORMATION
  Report Type: Spontaneous
  Country: JP (occurrence: JP)
  Receive Date: 20190314
  Receipt Date: 20190314
  Transmission Date: 20190418
  Serious: Yes (Other)
  Sender: FDA-Public Use
  Company Number: JP-009507513-1903JPN000187J

PATIENT
  Age: 50 Year

DRUGS (1)
  1. KEYTRUDA [Suspect]
     Active Substance: PEMBROLIZUMAB
     Dosage: 200 MILLIGRAM, Q3W
     Route: 041

REACTIONS (5)
  - Colitis [Recovered/Resolved]
  - Myositis [Recovering/Resolving]
  - Adrenal insufficiency [Recovered/Resolved]
  - Ileus [Recovered/Resolved]
  - Myositis [Recovered/Resolved]
